FAERS Safety Report 6491678-X (Version None)
Quarter: 2009Q4

REPORT INFORMATION
  Report Type: 
  Country: None (occurrence: None)
  Receive Date: 20091211
  Receipt Date: 20091202
  Transmission Date: 20100525
  Serious: Yes (Hospitalization)
  Sender: FDA-Public Use
  Company Number: US-AMGEN-QUU374846

PATIENT
  Sex: Female

DRUGS (1)
  1. ENBREL [Suspect]
     Indication: RHEUMATOID ARTHRITIS
     Route: 058
     Dates: start: 20070514

REACTIONS (8)
  - AORTIC VALVE REPLACEMENT [None]
  - DISEASE PROGRESSION [None]
  - ERYTHEMA [None]
  - FEELING HOT [None]
  - LOCALISED OEDEMA [None]
  - MUSCULOSKELETAL STIFFNESS [None]
  - POST PROCEDURAL COMPLICATION [None]
  - TENDON OPERATION [None]
